FAERS Safety Report 7808178-4 (Version None)
Quarter: 2011Q4

REPORT INFORMATION
  Report Type: 
  Country: None (occurrence: None)
  Receive Date: 20111011
  Receipt Date: 20111003
  Transmission Date: 20120403
  Serious: Yes (Hospitalization, Other)
  Sender: FDA-Public Use
  Company Number: US-MERCK-1110USA00479

PATIENT
  Age: 79 Year
  Sex: Male

DRUGS (15)
  1. REVLIMID [Suspect]
     Indication: 5Q MINUS SYNDROME
     Route: 048
     Dates: start: 20110603, end: 20110629
  2. DOCUSATE SODIUM [Concomitant]
     Route: 048
  3. BISACODYL [Concomitant]
     Dosage: AS NEEDED
     Route: 048
  4. VITAMIN D (UNSPECIFIED) [Concomitant]
     Dosage: ONE ON AM AND ONE IN PM
     Route: 048
  5. REVLIMID [Suspect]
     Route: 048
     Dates: start: 20110711
  6. QUETIAPINE FUMARATE [Concomitant]
     Route: 048
  7. PRAVASTATIN SODIUM [Concomitant]
     Route: 048
  8. PREVACID [Concomitant]
     Route: 048
  9. ASPIRIN [Concomitant]
     Route: 065
  10. POLYETHYLENE GLYCOL [Concomitant]
     Route: 048
  11. SINEMET [Suspect]
     Indication: PARKINSON'S DISEASE
     Route: 048
  12. SEROQUEL [Concomitant]
     Indication: PARKINSON'S DISEASE
     Route: 065
  13. FINASTERIDE [Concomitant]
     Route: 048
  14. LODOSYN [Concomitant]
     Indication: PARKINSON'S DISEASE
     Route: 048
  15. SINEMET CR [Suspect]
     Indication: PARKINSON'S DISEASE
     Route: 048

REACTIONS (4)
  - CONSTIPATION [None]
  - HAEMOGLOBIN DECREASED [None]
  - MENTAL STATUS CHANGES [None]
  - URINARY RETENTION [None]
